FAERS Safety Report 5810941-6 (Version None)
Quarter: 2008Q3

REPORT INFORMATION
  Report Type: 
  Country: None (occurrence: None)
  Receive Date: 20080716
  Receipt Date: 20080707
  Transmission Date: 20090109
  Serious: Yes (Other)
  Sender: FDA-Public Use
  Company Number: PHEH2008US06068

PATIENT
  Sex: Female

DRUGS (2)
  1. AREDIA [Suspect]
  2. ZOMETA [Suspect]

REACTIONS (4)
  - INFECTION [None]
  - OSTEONECROSIS [None]
  - PAIN [None]
  - SCAR [None]
